FAERS Safety Report 9118319 (Version 2)
Quarter: 2013Q1

REPORT INFORMATION
  Report Type: Spontaneous
  Country: CN (occurrence: None)
  Receive Date: 20130128
  Receipt Date: 20130206
  Transmission Date: 20140127
  Serious: Yes (Hospitalization)
  Sender: FDA-Public Use
  Company Number: DSA_62114_2013

PATIENT
  Sex: Female

DRUGS (13)
  1. 5-FU [Suspect]
     Dosage: (620 MG; EVERY OTHER WEEK  INTRAVENUS BOULUS)?(120/2012  TO  12/03/2012)
     Route: 040
     Dates: start: 20121203, end: 20121203
  2. AFLIBERCEPT (AFLIBERCEPT) SOLUTION FOR INJECTION [Suspect]
     Indication: COLORECTAL CANCER METASTATIC
     Dosage: (224 MG; EVERY OTHER WEEK INTRAVENOUS (NOT OTHERWISE SPECIFIED))?(12/03/2012  TO  12/03/2012)
     Route: 042
     Dates: start: 20121203, end: 20121203
  3. IRINOTECAN (IRINOTECAN) [Suspect]
     Indication: COLORECTAL CANCER METASTATIC
     Dosage: (279 MG; EVERY OTHER WEEK INTRAVENOUS (NOT OTHERWISE SPECIFIED))?(12/03/2012  TO  12/03/2012)
     Route: 042
     Dates: start: 20121203, end: 20121203
  4. LEUCOVORIN [Suspect]
     Indication: COLORECTAL CANCER METASTATIC
     Dosage: (620 MG; EVERY OTHER WEEK INTRAVENOUS (NOT OTHERWISE SPECIFIED))?(12/03/2012  TO 12/03/2012)
     Route: 042
     Dates: start: 20121203, end: 20121203
  5. BISOPROLOL [Concomitant]
  6. AMLODIPINE [Concomitant]
  7. PROMETHAZINE [Concomitant]
  8. OMEPRAZOLE [Concomitant]
  9. DEXAMETHASONE [Concomitant]
  10. PALONOSETRON [Concomitant]
  11. OXALIPLATIN [Concomitant]
  12. FLUOROURACIL [Concomitant]
  13. FOLINIC ACID [Concomitant]

REACTIONS (1)
  - Hepatitis B [None]
